FAERS Safety Report 8797350 (Version 1)
Quarter: 2012Q4

REPORT INFORMATION
  Report Type: 
  Country: US (occurrence: US)
  Receive Date: 20120920
  Receipt Date: 20120920
  Transmission Date: 20130627
  Serious: No
  Sender: FDA-Public Use
  Company Number: US-PFIZER INC-2012229252

PATIENT
  Age: 56 Year
  Sex: Female

DRUGS (3)
  1. VIBRAMYCIN [Suspect]
     Dosage: UNK
  2. TETANUS TOXOID ADSORBED NOS [Suspect]
     Indication: IMMUNISATION
     Dosage: 1 DF, single
  3. CODEINE [Suspect]
     Dosage: UNK

REACTIONS (1)
  - Drug hypersensitivity [Unknown]
